FAERS Safety Report 4452590-0 (Version None)
Quarter: 2004Q3

REPORT INFORMATION
  Report Type: 
  Country: None (occurrence: None)
  Receive Date: 20040916
  Receipt Date: 20040903
  Transmission Date: 20050211
  Serious: Yes (Disabling)
  Sender: FDA-Public Use
  Company Number: A124751

PATIENT
  Sex: Male

DRUGS (4)
  1. ZOLOFT [Suspect]
     Indication: DEPRESSION
     Dosage: 50 MG (1 IN 1 D); ORAL (SEE IMAGE)
     Route: 048
     Dates: start: 20010120, end: 20010201
  2. CITALOPRAM HYDROBROMIDE (CITALOPRAM HYDROBROMIDE) [Concomitant]
  3. TRIMIPRAMINE MALEATE [Concomitant]
  4. CHLORPROTHIXENE HYDROCHLORIDE [Concomitant]

REACTIONS (47)
  - ABDOMINAL PAIN UPPER [None]
  - AGGRESSION [None]
  - ALOPECIA [None]
  - ANXIETY DISORDER [None]
  - CANDIDIASIS [None]
  - CHILLS [None]
  - CONFUSIONAL STATE [None]
  - CONSTIPATION [None]
  - CONTUSION [None]
  - CONVULSION [None]
  - COORDINATION ABNORMAL [None]
  - DEPRESSION [None]
  - DIARRHOEA [None]
  - DRUG INTOLERANCE [None]
  - DRY MOUTH [None]
  - DYSPHAGIA [None]
  - DYSPHONIA [None]
  - DYSTHYMIC DISORDER [None]
  - FATIGUE [None]
  - FEELING COLD [None]
  - HEADACHE [None]
  - HEART RATE INCREASED [None]
  - HYPERACUSIS [None]
  - HYPERHIDROSIS [None]
  - INSOMNIA [None]
  - IRRITABILITY [None]
  - KERATOCONJUNCTIVITIS SICCA [None]
  - MUSCLE TIGHTNESS [None]
  - MUSCULOSKELETAL STIFFNESS [None]
  - MYALGIA [None]
  - NERVOUSNESS [None]
  - PALPITATIONS [None]
  - PHARYNGOLARYNGEAL PAIN [None]
  - PHOTOPHOBIA [None]
  - RESTLESSNESS [None]
  - SKIN DISCOLOURATION [None]
  - SLEEP DISORDER [None]
  - SOMATOFORM DISORDER [None]
  - SOMNOLENCE [None]
  - STRESS SYMPTOMS [None]
  - SUICIDAL IDEATION [None]
  - TENSION [None]
  - THINKING ABNORMAL [None]
  - TINNITUS [None]
  - TREMOR [None]
  - VISUAL DISTURBANCE [None]
  - WEIGHT DECREASED [None]
